FAERS Safety Report 15066024 (Version 1)
Quarter: 2018Q2

REPORT INFORMATION
  Report Type: Spontaneous
  Country: BE (occurrence: BE)
  Receive Date: 20180626
  Receipt Date: 20180626
  Transmission Date: 20180711
  Serious: Yes (Death, Life-Threatening, Other)
  Sender: FDA-Public Use
  Company Number: BE-MYLANLABS-2018M1035788

PATIENT
  Age: 40 Year
  Sex: Female

DRUGS (18)
  1. AZATHIOPRINE. [Suspect]
     Active Substance: AZATHIOPRINE
     Indication: IMMUNOSUPPRESSION
  2. IVEGAM CMV [Concomitant]
     Active Substance: HUMAN CYTOMEGALOVIRUS IMMUNE GLOBULIN
     Indication: INFECTION PROPHYLAXIS
     Dosage: 1 ML/KG, UNKNOWN FREQ.(AT DAYS 1, 7,14, 28, 42,70, AND 98)
  3. AZATHIOPRINE. [Suspect]
     Active Substance: AZATHIOPRINE
     Indication: INTESTINAL TRANSPLANT
  4. METHYLPREDNISOLONE                 /00049602/ [Suspect]
     Active Substance: METHYLPREDNISOLONE
     Indication: INTESTINAL TRANSPLANT
     Dosage: 40 MG, QD
     Route: 042
  5. TAZOCIN [Concomitant]
     Active Substance: PIPERACILLIN SODIUM\TAZOBACTAM SODIUM
     Indication: INFECTION PROPHYLAXIS
     Dosage: 12 G, QD
     Route: 065
  6. DIPEPTIVEN [Concomitant]
     Active Substance: ALANYL GLUTAMINE
     Indication: PRODUCT USED FOR UNKNOWN INDICATION
     Dosage: 40 G, QD
     Route: 042
  7. ANTITHYMOCYTE IMMUNOGLOBULIN [Suspect]
     Active Substance: THYMOCYTE IMMUNE GLOBULIN NOS
     Indication: INTESTINAL TRANSPLANT
     Dosage: 1.5 MG/KG, UNKNOWN FREQUENCY(4- 6 HPRETRANSPLANT UNTIL DAY 4)
     Route: 065
  8. TACROLIMUS. [Suspect]
     Active Substance: TACROLIMUS
     Indication: IMMUNOSUPPRESSION
     Dosage: 15 UNK, UNK
  9. DIFLUCAN [Concomitant]
     Active Substance: FLUCONAZOLE
     Indication: INFECTION PROPHYLAXIS
     Dosage: 6 MG, QD
     Route: 065
  10. TACROLIMUS. [Suspect]
     Active Substance: TACROLIMUS
     Indication: INTESTINAL TRANSPLANT
  11. METHYLPREDNISOLONE                 /00049602/ [Suspect]
     Active Substance: METHYLPREDNISOLONE
     Indication: IMMUNOSUPPRESSION
     Dosage: 20 MG, BID
  12. TOBRAMYCINE                        /00304201/ [Concomitant]
     Indication: THERAPEUTIC PROCEDURE
     Dosage: 80 MG, UNK
  13. COLIMYCINE                         /00013203/ [Concomitant]
     Active Substance: COLISTIMETHATE SODIUM
     Indication: THERAPEUTIC PROCEDURE
     Dosage: 2 X 10^6 UNITS, UNKNOWN FREQUENCY
     Route: 065
  14. BACTRIM [Concomitant]
     Active Substance: SULFAMETHOXAZOLE\TRIMETHOPRIM
     Indication: INFECTION PROPHYLAXIS
     Dosage: 80 MG, UNKNOWN FREQ. (EVERY 2 DAYS)
  15. NYSTATINE [Concomitant]
     Indication: THERAPEUTIC PROCEDURE
     Dosage: 5 ML, UNK
  16. METHYLPREDNISOLONE                 /00049602/ [Suspect]
     Active Substance: METHYLPREDNISOLONE
     Dosage: 16 UNK, UNK
     Route: 065
  17. AMPHOTERICIN B, LIPOSOME [Concomitant]
     Active Substance: AMPHOTERICIN B
     Indication: INFECTION PROPHYLAXIS
     Dosage: 3 MG/KG, QD
     Route: 065
  18. CYMEVENE                           /00784201/ [Concomitant]
     Active Substance: GANCICLOVIR
     Indication: INFECTION PROPHYLAXIS
     Dosage: 10 MG/KG, QD

REACTIONS (3)
  - Candida infection [Unknown]
  - Off label use [Unknown]
  - Aspergillus infection [Fatal]
